FAERS Safety Report 6721578-9 (Version None)
Quarter: 2010Q2

REPORT INFORMATION
  Report Type: 
  Country: None (occurrence: None)
  Receive Date: 20100512
  Receipt Date: 20100503
  Transmission Date: 20101027
  Serious: Yes (Other)
  Sender: FDA-Public Use
  Company Number: US-JNJFOC-20100306683

PATIENT
  Sex: Female
  Weight: 137 kg

DRUGS (6)
  1. INVEGA SUSTENNA [Suspect]
     Indication: SCHIZOPHRENIA
     Route: 030
  2. INVEGA SUSTENNA [Suspect]
     Route: 030
  3. COGENTIN [Concomitant]
     Indication: EXTRAPYRAMIDAL DISORDER
     Route: 048
  4. WELLBUTRIN XL [Concomitant]
     Route: 048
  5. PROPRANOLOL [Concomitant]
     Route: 048
  6. TRAZODONE [Concomitant]
     Indication: INSOMNIA
     Route: 051

REACTIONS (1)
  - PEMPHIGOID [None]
